FAERS Safety Report 16845354 (Version 1)
Quarter: 2019Q3

REPORT INFORMATION
  Report Type: Spontaneous
  Country: US (occurrence: US)
  Receive Date: 20190924
  Receipt Date: 20190924
  Transmission Date: 20191005
  Serious: No
  Sender: FDA-Public Use
  Company Number: US-ASTRAZENECA-2019SF23788

PATIENT
  Sex: Female

DRUGS (4)
  1. TAGRISSO [Suspect]
     Active Substance: OSIMERTINIB
     Route: 048
  2. SYSTEMIC STEROIDS UNSPECIFIED [Concomitant]
     Indication: RASH
  3. TAGRISSO [Suspect]
     Active Substance: OSIMERTINIB
     Route: 048
  4. TAGRISSO [Suspect]
     Active Substance: OSIMERTINIB
     Route: 048

REACTIONS (2)
  - Rash [Recovering/Resolving]
  - Nervousness [Unknown]
